FAERS Safety Report 22202886 (Version 1)
Quarter: 2023Q2

REPORT INFORMATION
  Report Type: Spontaneous
  Country: US (occurrence: None)
  Receive Date: 20230412
  Receipt Date: 20230412
  Transmission Date: 20230722
  Serious: No
  Sender: FDA-Public Use
  Company Number: None

PATIENT
  Age: 68 Year
  Sex: Male
  Weight: 84.87 kg

DRUGS (5)
  1. ABIRATERONE ACETATE [Suspect]
     Active Substance: ABIRATERONE ACETATE
     Indication: Prostate cancer
     Dosage: FREQUENCY : DAILY;?
     Route: 048
  2. OXYCODONE [Concomitant]
  3. ATENOLOL [Concomitant]
  4. PREDNISONE [Concomitant]
  5. MULTIVITAMIN [Concomitant]

REACTIONS (1)
  - Drug ineffective [None]
